FAERS Safety Report 17815544 (Version 1)
Quarter: 2020Q2

REPORT INFORMATION
  Report Type: Report from Study
  Country: US (occurrence: US)
  Receive Date: 20200522
  Receipt Date: 20200522
  Transmission Date: 20200714
  Serious: Yes (Other)
  Sender: FDA-Public Use
  Company Number: US-ROCHE-2414612

PATIENT
  Sex: Male

DRUGS (2)
  1. RITUXAN [Suspect]
     Active Substance: RITUXIMAB
     Indication: ENCEPHALOMYELITIS
  2. RITUXAN [Suspect]
     Active Substance: RITUXIMAB
     Indication: ENCEPHALITIS
     Dosage: INFUSE 1000 MG INTRAVENOUSLY ON DAY 1 AND DAY 15
     Route: 042

REACTIONS (3)
  - Off label use [Unknown]
  - Neuromyelitis optica spectrum disorder [Unknown]
  - Intentional product use issue [Unknown]
